FAERS Safety Report 7921515-5 (Version None)
Quarter: 2011Q4

REPORT INFORMATION
  Report Type: 
  Country: None (occurrence: None)
  Receive Date: 20111117
  Receipt Date: 20110701
  Transmission Date: 20120403
  Serious: No
  Sender: FDA-Public Use
  Company Number: US-MYLANLABS-2011S1013996

PATIENT
  Age: 62 Year
  Sex: Female

DRUGS (2)
  1. MAXZIDE [Suspect]
     Indication: BLOOD PRESSURE INCREASED
     Dosage: 37.5/25MG
     Route: 048
     Dates: start: 19910101
  2. MAXZIDE [Suspect]
     Route: 048
     Dates: start: 19910101

REACTIONS (2)
  - RENAL PAIN [None]
  - BLOOD GLUCOSE INCREASED [None]
